FAERS Safety Report 9222558 (Version 1)
Quarter: 2013Q1

REPORT INFORMATION
  Report Type: Spontaneous
  Country: US (occurrence: None)
  Receive Date: 20120914
  Receipt Date: 20120914
  Transmission Date: 20140127
  Serious: Yes (Other)
  Sender: FDA-Public Use
  Company Number: JPI-P-021301

PATIENT
  Age: 33 Year
  Sex: Female
  Weight: 61.24 kg

DRUGS (9)
  1. XYREM [Suspect]
     Indication: CATAPLEXY
     Dosage: 5 GM (2.5 GM,2 IN 1 D),ORAL
     Route: 048
     Dates: start: 200402
  2. ALCOHOL [Suspect]
     Indication: ALCOHOL USE
     Dosage: STOPPED
  3. ESCITALOPRAM OXALATE [Concomitant]
  4. CETRIZINE [Concomitant]
  5. CALCIUM/D3 [Concomitant]
  6. B12 [Concomitant]
  7. VITAMIN C [Concomitant]
  8. ? [Concomitant]
  9. ARMODAFINIL [Concomitant]

REACTIONS (6)
  - Convulsion [None]
  - Alcohol interaction [None]
  - Abnormal dreams [None]
  - Hypnagogic hallucination [None]
  - Nocturia [None]
  - Dry throat [None]
